FAERS Safety Report 4962839-3 (Version None)
Quarter: 2006Q2

REPORT INFORMATION
  Report Type: 
  Country: None (occurrence: None)
  Receive Date: 20060405
  Receipt Date: 20060103
  Transmission Date: 20061013
  Serious: Yes (Life-Threatening, Hospitalization)
  Sender: FDA-Public Use
  Company Number: US-BOEHRINGER INGELHEIM PHARMACEUTICALS, INC.-2006-BP-00028BP

PATIENT
  Age: 81 Year
  Sex: Female

DRUGS (8)
  1. MIRAPEX [Suspect]
     Indication: PARKINSON'S DISEASE
     Route: 048
     Dates: start: 20051124, end: 20051124
  2. HYDROCHLOROTHIAZIDE [Concomitant]
     Indication: HYPERTENSION
  3. ATENOLOL [Concomitant]
     Indication: HYPERTENSION
  4. FELODIPINE [Concomitant]
     Indication: HYPERTENSION
  5. LISINOPRIL [Concomitant]
     Indication: HYPERTENSION
  6. POTASSIUM [Concomitant]
     Indication: ELECTROLYTE SUBSTITUTION THERAPY
  7. MAGNESIUM [Concomitant]
     Indication: MINERAL SUPPLEMENTATION
  8. FOSAMAX [Concomitant]

REACTIONS (3)
  - PULSE ABSENT [None]
  - RESPIRATORY FAILURE [None]
  - SYNCOPE [None]
